FAERS Safety Report 19091201 (Version 2)
Quarter: 2021Q2

REPORT INFORMATION
  Report Type: Spontaneous
  Country: US (occurrence: US)
  Receive Date: 20210405
  Receipt Date: 20210607
  Transmission Date: 20210717
  Serious: No
  Sender: FDA-Public Use
  Company Number: US-ORGANON-O2103USA002708

PATIENT
  Age: 69 Year
  Sex: Female
  Weight: 66.21 kg

DRUGS (4)
  1. PREGNYL [Suspect]
     Active Substance: CHORIOGONADOTROPIN ALFA
     Indication: WEIGHT DECREASED
     Dosage: 2 UNITS
  2. PREGNYL [Suspect]
     Active Substance: CHORIOGONADOTROPIN ALFA
     Dosage: 3 UNITS
  3. PREGNYL [Suspect]
     Active Substance: CHORIOGONADOTROPIN ALFA
     Dosage: 4 UNITS/1X PER DAY
     Dates: start: 20210223
  4. STERILE WATER [Suspect]
     Active Substance: WATER
     Dosage: UNK

REACTIONS (5)
  - Product prescribing issue [Unknown]
  - Hunger [Not Recovered/Not Resolved]
  - Drug ineffective for unapproved indication [Unknown]
  - Product quality issue [Unknown]
  - Product use in unapproved indication [Unknown]

NARRATIVE: CASE EVENT DATE: 202102
